FAERS Safety Report 7528931-4 (Version None)
Quarter: 2011Q2

REPORT INFORMATION
  Report Type: 
  Country: None (occurrence: None)
  Receive Date: 20110520
  Receipt Date: 20110214
  Transmission Date: 20111010
  Serious: No
  Sender: FDA-Public Use
  Company Number: 025304

PATIENT
  Sex: Female

DRUGS (2)
  1. LACOSAMIDE [Suspect]
     Dosage: (50 MG BID, 50MG AM, 50MG PM ORAL), (50 MG QD, BEDTIME)
     Route: 048
     Dates: start: 20101020
  2. TOPIRAMATE [Concomitant]

REACTIONS (1)
  - SINUS BRADYCARDIA [None]
